FAERS Safety Report 6292551-2 (Version None)
Quarter: 2009Q3

REPORT INFORMATION
  Report Type: 
  Country: None (occurrence: None)
  Receive Date: 20090731
  Receipt Date: 20090721
  Transmission Date: 20100115
  Serious: Yes (Hospitalization)
  Sender: FDA-Public Use
  Company Number: JP-PFIZER INC-2009245166

PATIENT
  Age: 45 Year

DRUGS (6)
  1. SUNITINIB MALATE [Suspect]
     Indication: BREAST CANCER RECURRENT
     Dosage: 37.5 MG, DAILY
     Route: 048
     Dates: start: 20090619, end: 20090715
  2. SUNITINIB MALATE [Suspect]
     Dosage: 25 MG, DAILY
     Dates: start: 20090716
  3. *CAPECITABINE [Suspect]
     Indication: BREAST CANCER RECURRENT
     Dosage: 1750 MG, 2X/DAY
     Route: 048
     Dates: start: 20090619
  4. FAMOTIDINE [Suspect]
     Indication: NAUSEA
     Dosage: UNK
     Route: 048
     Dates: start: 20090626
  5. PYRIDOXAL PHOSPHATE [Concomitant]
     Dosage: UNK
     Route: 048
     Dates: start: 20090619, end: 20090715
  6. UREA [Concomitant]
     Dosage: UNK
     Route: 062
     Dates: start: 20090619

REACTIONS (1)
  - GASTROENTERITIS [None]
